FAERS Safety Report 9705551 (Version 1)
Quarter: 2013Q4

REPORT INFORMATION
  Report Type: Spontaneous
  Country: US (occurrence: US)
  Receive Date: 20131122
  Receipt Date: 20131122
  Transmission Date: 20140711
  Serious: Yes (Hospitalization)
  Sender: FDA-Public Use
  Company Number: US-009507513-1311USA006498

PATIENT
  Age: 92 Year
  Sex: Female

DRUGS (1)
  1. MIRALAX [Suspect]
     Indication: INTESTINAL OBSTRUCTION
     Dosage: UNK, QAM
     Route: 048

REACTIONS (2)
  - Hospitalisation [Unknown]
  - Incorrect drug administration duration [Unknown]
